FAERS Safety Report 4465098-3 (Version None)
Quarter: 2004Q3

REPORT INFORMATION
  Report Type: 
  Country: None (occurrence: None)
  Receive Date: 20040928
  Receipt Date: 20040928
  Transmission Date: 20050211
  Serious: Yes (Other)
  Sender: FDA-Public Use
  Company Number: None

PATIENT
  Sex: Female
  Weight: 44 kg

DRUGS (17)
  1. LEVAQUIN [Suspect]
     Indication: UPPER RESPIRATORY TRACT INFECTION
     Dosage: ORAL
     Route: 048
     Dates: start: 20031108, end: 20031112
  2. LOPRESSOR [Concomitant]
  3. CORDARONE [Concomitant]
  4. CAPOTEN [Concomitant]
  5. COUMADIN [Concomitant]
  6. NEXIUM [Concomitant]
  7. LANOXIN [Concomitant]
  8. FOLIC ACID [Concomitant]
  9. IRON [Concomitant]
  10. DIABETA [Concomitant]
  11. TENORMIN [Concomitant]
  12. MAGNESIUM SULFATE [Concomitant]
  13. FLOVENT [Concomitant]
  14. ALBUTEROL [Concomitant]
  15. ZYRTEC [Concomitant]
  16. NYSTATIN [Concomitant]
  17. ZOVIRAX [Concomitant]

REACTIONS (1)
  - STEVENS-JOHNSON SYNDROME [None]
